FAERS Safety Report 20701253 (Version 3)
Quarter: 2022Q2

REPORT INFORMATION
  Report Type: Report from Study
  Country: US (occurrence: US)
  Receive Date: 20220412
  Receipt Date: 20220429
  Transmission Date: 20220721
  Serious: No
  Sender: FDA-Public Use
  Company Number: US-NOVARTISTESTPH-NVSC2022US082278

PATIENT
  Age: 79 Year
  Sex: Male

DRUGS (1)
  1. ENTRESTO [Suspect]
     Active Substance: SACUBITRIL\VALSARTAN
     Indication: Product used for unknown indication
     Dosage: 1 DOSAGE FORM, (97/103MG)
     Route: 065

REACTIONS (4)
  - Blood pressure abnormal [Recovering/Resolving]
  - Dyspnoea [Recovering/Resolving]
  - Rhinorrhoea [Unknown]
  - Cough [Unknown]

NARRATIVE: CASE EVENT DATE: 20220401
